FAERS Safety Report 14117503 (Version 1)
Quarter: 2017Q4

REPORT INFORMATION
  Report Type: Spontaneous
  Country: US (occurrence: US)
  Receive Date: 20171023
  Receipt Date: 20171023
  Transmission Date: 20180321
  Serious: No
  Sender: FDA-Public Use
  Company Number: US-ALLERGAN-1708224US

PATIENT
  Sex: Female
  Weight: 71.66 kg

DRUGS (1)
  1. LINZESS [Suspect]
     Active Substance: LINACLOTIDE
     Indication: CONSTIPATION
     Dosage: 145 ?G, QD
     Route: 048
     Dates: start: 20151110, end: 20170307

REACTIONS (4)
  - Alopecia [Unknown]
  - Hair growth abnormal [Unknown]
  - Wrong technique in product usage process [Unknown]
  - Diarrhoea [Unknown]
